FAERS Safety Report 19161264 (Version 1)
Quarter: 2021Q2

REPORT INFORMATION
  Report Type: Spontaneous
  Country: US (occurrence: US)
  Receive Date: 20210420
  Receipt Date: 20210420
  Transmission Date: 20210717
  Serious: Yes (Other)
  Sender: FDA-Public Use
  Company Number: US-PURDUE-USA-2020-0175396

PATIENT
  Sex: Female

DRUGS (3)
  1. TRAMADOL CR TABLETS (RHODES 21?745) [Suspect]
     Active Substance: TRAMADOL
     Indication: PRODUCT USED FOR UNKNOWN INDICATION
     Dosage: UNK
     Route: 048
  2. HYDROCODONE BITARTRATE AND ACETAMINOPHEN [Suspect]
     Active Substance: ACETAMINOPHEN\HYDROCODONE BITARTRATE
     Indication: TOOTH EXTRACTION
     Dosage: UNK
     Route: 048
  3. LORCET PLUS [Suspect]
     Active Substance: ACETAMINOPHEN\HYDROCODONE BITARTRATE
     Indication: PAIN
     Dosage: 7.5/650 MG EVERY 4 HOURS
     Route: 048
     Dates: start: 20070517

REACTIONS (3)
  - Overdose [Unknown]
  - Maternal exposure during pregnancy [Unknown]
  - Drug dependence [Unknown]

NARRATIVE: CASE EVENT DATE: 2007
